FAERS Safety Report 14825604 (Version 1)
Quarter: 2018Q2

REPORT INFORMATION
  Report Type: Spontaneous
  Country: NL (occurrence: NL)
  Receive Date: 20180430
  Receipt Date: 20180430
  Transmission Date: 20180711
  Serious: Yes (Hospitalization)
  Sender: FDA-Public Use
  Company Number: NL-TEVA-2018-NL-887259

PATIENT
  Age: 92 Year
  Sex: Female

DRUGS (3)
  1. DOXYCYCLINE. [Suspect]
     Active Substance: DOXYCYCLINE
     Indication: RESPIRATORY TRACT INFECTION
     Dosage: 100 MILLIGRAM DAILY; FIRST DAY 2, THEN EVERY DAY 1
     Route: 065
     Dates: start: 20180224, end: 20180226
  2. ACENOCOUMAROL [Interacting]
     Active Substance: ACENOCOUMAROL
     Route: 065
  3. DOXYCYCLINE. [Interacting]
     Active Substance: DOXYCYCLINE
     Dosage: EERSTE DAG 2, DAARNA ELKE DAG 1
     Dates: start: 20180223, end: 20180224

REACTIONS (3)
  - International normalised ratio fluctuation [Recovering/Resolving]
  - Haemorrhage [Recovering/Resolving]
  - Drug interaction [Recovering/Resolving]

NARRATIVE: CASE EVENT DATE: 20180226
